FAERS Safety Report 10135614 (Version 2)
Quarter: 2014Q2

REPORT INFORMATION
  Report Type: Report from Study
  Country: MX (occurrence: MX)
  Receive Date: 20140428
  Receipt Date: 20140624
  Transmission Date: 20141212
  Serious: Yes (Death)
  Sender: FDA-Public Use
  Company Number: PHHY2014MX051330

PATIENT
  Age: 85 Year
  Sex: Female

DRUGS (4)
  1. CO-DIOVAN [Suspect]
     Indication: HYPERTENSION
     Dosage: 1 DF (160/25 MG), DAILY
     Route: 048
  2. LOPRESSOR [Concomitant]
     Dosage: 0.5 DF (100 MG), DAILY
  3. CORDARONE [Concomitant]
     Dosage: 0.5 DF (200 MG), DAILY
  4. ASPIRIN PROTECT [Concomitant]
     Dosage: 1 DF (100 MG), DAILY

REACTIONS (5)
  - Cardiac failure congestive [Fatal]
  - Acute myocardial infarction [Fatal]
  - Pneumonia [Fatal]
  - Gait disturbance [Unknown]
  - Arthropathy [Unknown]
